FAERS Safety Report 16626048 (Version 1)
Quarter: 2019Q3

REPORT INFORMATION
  Report Type: Spontaneous
  Country: SA (occurrence: SA)
  Receive Date: 20190724
  Receipt Date: 20190724
  Transmission Date: 20191004
  Serious: Yes (Other)
  Sender: FDA-Public Use
  Company Number: SA-CASPER PHARMA LLC-2019CAS000359

PATIENT
  Age: 19 Year
  Sex: Male

DRUGS (1)
  1. NEOMYCIN, POLYMYXIN, BACITRACIN, HC [Suspect]
     Active Substance: BACITRACIN ZINC\HYDROCORTISONE\NEOMYCIN SULFATE\POLYMYXIN B SULFATE
     Indication: PSORIASIS
     Dosage: 2.5 PERCENT
     Route: 061

REACTIONS (2)
  - Idiopathic intracranial hypertension [Recovering/Resolving]
  - Product use in unapproved indication [Unknown]
